FAERS Safety Report 4414204-5 (Version None)
Quarter: 2004Q2

REPORT INFORMATION
  Report Type: 
  Country: None (occurrence: None)
  Receive Date: 20040630
  Receipt Date: 20040525
  Transmission Date: 20050107
  Serious: No
  Sender: FDA-Public Use
  Company Number: 04P-163-0261867-00

PATIENT
  Age: 68 Year
  Sex: Female
  Weight: 97.5234 kg

DRUGS (9)
  1. HUMIRA [Suspect]
     Indication: PSORIASIS
     Dosage: 40 MG, 1 IN 2 WK, SUBCUTANEOUS
     Route: 058
     Dates: start: 20040513
  2. ROFECOXIB [Concomitant]
  3. LEVOTHYROXINE SODIUM [Concomitant]
  4. FOSINOPRIL SODIUM [Concomitant]
  5. CRESTOR [Concomitant]
  6. GLUCOSAMINE [Concomitant]
  7. DARVOCET [Concomitant]
  8. CALCIPOTRIOL [Concomitant]
  9. FLUTICASONE PROPIONATE [Concomitant]

REACTIONS (2)
  - INJECTION SITE ERYTHEMA [None]
  - INJECTION SITE STINGING [None]
